FAERS Safety Report 22379003 (Version 7)
Quarter: 2023Q4

REPORT INFORMATION
  Report Type: Report from Study
  Country: US (occurrence: US)
  Receive Date: 20230529
  Receipt Date: 20231204
  Transmission Date: 20240110
  Serious: No
  Sender: FDA-Public Use
  Company Number: US-002147023-NVSC2023US122582

PATIENT
  Age: 73 Year
  Sex: Female
  Weight: 59.1 kg

DRUGS (4)
  1. PIQRAY [Suspect]
     Active Substance: ALPELISIB
     Indication: Breast cancer stage II
     Dosage: 2 DOSAGE FORM, QD
     Route: 048
     Dates: start: 20230526, end: 20230604
  2. KISQALI [Suspect]
     Active Substance: RIBOCICLIB
     Indication: Breast cancer metastatic
     Dosage: 400 MG, QD
     Route: 065
  3. KISQALI [Suspect]
     Active Substance: RIBOCICLIB
     Dosage: 200 MG, QD
     Route: 065
  4. FULVESTRANT [Concomitant]
     Active Substance: FULVESTRANT
     Indication: Product used for unknown indication
     Dosage: 2 OF 250 MG, EVERY 28 DAYS
     Route: 030
     Dates: start: 20230516

REACTIONS (7)
  - Chills [Recovered/Resolved]
  - Diarrhoea [Recovered/Resolved]
  - Rash [Recovered/Resolved]
  - Erythema [Recovered/Resolved]
  - Diarrhoea [Unknown]
  - Lethargy [Unknown]
  - Injection site hypersensitivity [Unknown]

NARRATIVE: CASE EVENT DATE: 20230605
